FAERS Safety Report 6343103-7 (Version None)
Quarter: 2009Q3

REPORT INFORMATION
  Report Type: 
  Country: None (occurrence: None)
  Receive Date: 20090908
  Receipt Date: 20090827
  Transmission Date: 20100115
  Serious: Yes (Other)
  Sender: FDA-Public Use
  Company Number: US-BAYER-200930126NA

PATIENT
  Age: 22 Year
  Sex: Female
  Weight: 51 kg

DRUGS (7)
  1. YAZ [Suspect]
     Indication: DYSFUNCTIONAL UTERINE BLEEDING
     Dosage: TOTAL DAILY DOSE: 1 DF
     Route: 048
     Dates: start: 20070111, end: 20090817
  2. PROZAC [Concomitant]
  3. RISPERIDONE [Concomitant]
     Indication: ANXIETY
  4. KLONOPIN [Concomitant]
  5. ZOLOFT [Concomitant]
     Indication: ANXIETY
  6. PROZAC [Concomitant]
     Indication: ANXIETY
  7. COMPAZINE [Concomitant]
     Indication: ANXIETY

REACTIONS (2)
  - AORTIC ANEURYSM [None]
  - SYNCOPE [None]
